FAERS Safety Report 10182576 (Version 1)
Quarter: 2014Q2

REPORT INFORMATION
  Report Type: Spontaneous
  Country: US (occurrence: None)
  Receive Date: 20140416
  Receipt Date: 20140416
  Transmission Date: 20141212
  Serious: Yes (Other)
  Sender: FDA-Public Use
  Company Number: 163-POMAL-14012249

PATIENT
  Age: 67 Year
  Sex: Female

DRUGS (1)
  1. POMALYST(POMALIDOMIDE)(4 MILLGRAM, CAPSULES) [Suspect]
     Indication: PLASMA CELL MYELOMA
     Dosage: 4 MG, 21 IN 28 D, PO
     Route: 048
     Dates: start: 20131209

REACTIONS (2)
  - Lower respiratory tract infection [None]
  - Bone pain [None]
